FAERS Safety Report 5719097-1 (Version None)
Quarter: 2008Q2

REPORT INFORMATION
  Report Type: 
  Country: None (occurrence: None)
  Receive Date: 20080423
  Receipt Date: 20080417
  Transmission Date: 20081010
  Serious: Yes (Death, Other)
  Sender: FDA-Public Use
  Company Number: 100#08#2008-02143

PATIENT
  Age: 67 Year
  Sex: Male

DRUGS (2)
  1. CYCLOSPORINE [Suspect]
     Indication: IMMUNOSUPPRESSANT DRUG THERAPY
  2. DOXORUBICIN HCL [Suspect]
     Indication: KAPOSI'S SARCOMA

REACTIONS (7)
  - GRAFT VERSUS HOST DISEASE [None]
  - KAPOSI'S SARCOMA [None]
  - MENINGITIS CRYPTOCOCCAL [None]
  - PNEUMONIA [None]
  - PSEUDOMEMBRANOUS COLITIS [None]
  - RESPIRATORY FAILURE [None]
  - SEPSIS [None]
